FAERS Safety Report 18800995 (Version 1)
Quarter: 2021Q1

REPORT INFORMATION
  Report Type: Spontaneous
  Country: FR (occurrence: FR)
  Receive Date: 20210128
  Receipt Date: 20210128
  Transmission Date: 20210419
  Serious: Yes (Life-Threatening)
  Sender: FDA-Public Use
  Company Number: FR-MYLANLABS-2021M1005483

PATIENT
  Age: 64 Year
  Sex: Female
  Weight: 60 kg

DRUGS (9)
  1. TERALITHE [Interacting]
     Active Substance: LITHIUM CARBONATE
     Indication: BIPOLAR DISORDER
     Dosage: 1000 MILLIGRAM, QD
     Route: 048
     Dates: end: 20201119
  2. LEPTICUR [Concomitant]
     Active Substance: TROPATEPINE HYDROCHLORIDE
     Dosage: UNK
  3. PERINDOPRIL [Interacting]
     Active Substance: PERINDOPRIL
     Indication: PRODUCT USED FOR UNKNOWN INDICATION
     Dosage: 4 MILLIGRAM, QD
     Route: 048
     Dates: start: 202010, end: 20201119
  4. LEXOMIL [Concomitant]
     Active Substance: BROMAZEPAM
     Dosage: UNK
  5. TAHOR [Concomitant]
     Active Substance: ATORVASTATIN CALCIUM
     Dosage: UNK
  6. LOXAPAC                            /00401802/ [Concomitant]
     Active Substance: LOXAPINE SUCCINATE
     Dosage: UNK
  7. BISOCE [Concomitant]
     Active Substance: BISOPROLOL
     Dosage: UNK
  8. KARDEGIC [Concomitant]
     Active Substance: ASPIRIN DL-LYSINE
     Dosage: UNK
  9. FUROSEMIDE. [Suspect]
     Active Substance: FUROSEMIDE
     Indication: PRODUCT USED FOR UNKNOWN INDICATION
     Dosage: 40 MILLIGRAM
     Route: 048
     Dates: start: 202010, end: 20201117

REACTIONS (7)
  - Antipsychotic drug level increased [Recovered/Resolved]
  - Pyramidal tract syndrome [Recovered/Resolved]
  - Gait disturbance [Recovered/Resolved]
  - Renal failure [Recovered/Resolved]
  - Drug interaction [Unknown]
  - Altered state of consciousness [Recovered/Resolved]
  - Confusional state [Recovered/Resolved]

NARRATIVE: CASE EVENT DATE: 20201114
